FAERS Safety Report 5787299-4 (Version None)
Quarter: 2008Q2

REPORT INFORMATION
  Report Type: 
  Country: None (occurrence: None)
  Receive Date: 20080625
  Receipt Date: 20070925
  Transmission Date: 20081010
  Serious: No
  Sender: FDA-Public Use
  Company Number: US-ASTRAZENECA-2007UW22522

PATIENT
  Age: 70 Year
  Sex: Male
  Weight: 65.3 kg

DRUGS (2)
  1. PULMICORT RESPULES [Suspect]
     Indication: EMPHYSEMA
     Dosage: 0.5 MG BID
     Route: 055
  2. ANTIBIOTIC [Concomitant]

REACTIONS (1)
  - LIP PAIN [None]
